FAERS Safety Report 7378172-9 (Version None)
Quarter: 2011Q1

REPORT INFORMATION
  Report Type: 
  Country: None (occurrence: None)
  Receive Date: 20110328
  Receipt Date: 20110316
  Transmission Date: 20110831
  Serious: Yes (Hospitalization)
  Sender: FDA-Public Use
  Company Number: A0751423A

PATIENT
  Age: 44 Year
  Sex: Female

DRUGS (1)
  1. AVANDIA [Suspect]
     Dosage: 4MG PER DAY
     Route: 048
     Dates: end: 20060101

REACTIONS (5)
  - HEART RATE INCREASED [None]
  - WEIGHT INCREASED [None]
  - HEADACHE [None]
  - CHEST PAIN [None]
  - MYOCARDIAL INFARCTION [None]
